FAERS Safety Report 7489149-7 (Version None)
Quarter: 2011Q2

REPORT INFORMATION
  Report Type: 
  Country: None (occurrence: None)
  Receive Date: 20110518
  Receipt Date: 20110509
  Transmission Date: 20111010
  Serious: Yes (Death)
  Sender: FDA-Public Use
  Company Number: US-BRISTOL-MYERS SQUIBB COMPANY-15092356

PATIENT
  Age: 60 Year
  Sex: Male
  Weight: 74 kg

DRUGS (22)
  1. FISH OIL [Concomitant]
     Route: 065
  2. METFORMIN HCL [Concomitant]
     Route: 065
  3. HYDROCHLOROTHIAZIDE [Concomitant]
     Route: 065
  4. DIAZEPAM [Concomitant]
     Route: 065
  5. OXYCONTIN [Concomitant]
     Route: 065
  6. NIACIN [Concomitant]
     Route: 065
  7. DEXAMETHASONE [Concomitant]
     Route: 065
  8. CARBOPLATIN [Suspect]
     Indication: NON-SMALL CELL LUNG CANCER
     Route: 042
     Dates: start: 20100415, end: 20100427
  9. BENZONATATE [Concomitant]
     Route: 065
  10. LEVEMIR [Concomitant]
     Dosage: 1DF-90 UNITS
     Route: 065
  11. GEMFIBROZIL [Concomitant]
     Route: 065
  12. PSYLLIUM HYDROPHILIC MUCILLOID [Concomitant]
     Route: 065
  13. CETUXIMAB [Suspect]
     Indication: NON-SMALL CELL LUNG CANCER
     Route: 042
     Dates: start: 20100415, end: 20100427
  14. NEXIUM [Concomitant]
     Route: 065
  15. VYTORIN [Concomitant]
     Dosage: 1DF-10/40MG
     Route: 065
  16. PLAVIX [Concomitant]
     Route: 065
  17. GEMCITABINE [Suspect]
     Indication: NON-SMALL CELL LUNG CANCER
     Route: 042
     Dates: start: 20100415, end: 20100427
  18. OXYCODONE HCL [Concomitant]
     Route: 065
  19. INNOPRAN XL [Concomitant]
     Route: 065
  20. AGGRENOX [Concomitant]
     Dosage: 1DF-25/200 MCG
     Route: 065
  21. FLECTOR [Concomitant]
     Dosage: PATCH
     Route: 065
  22. LEUCOVORIN CALCIUM [Concomitant]
     Route: 065

REACTIONS (1)
  - FEBRILE NEUTROPENIA [None]
